FAERS Safety Report 13345740 (Version 6)
Quarter: 2017Q3

REPORT INFORMATION
  Report Type: Report from Study
  Country: US (occurrence: US)
  Receive Date: 20170317
  Receipt Date: 20170726
  Transmission Date: 20171127
  Serious: Yes (Other)
  Sender: FDA-Public Use
  Company Number: US-PFIZER INC-2017034660

PATIENT
  Age: 78 Year
  Sex: Male

DRUGS (5)
  1. SUTENT [Suspect]
     Active Substance: SUNITINIB MALATE
     Indication: RENAL CELL CARCINOMA
     Dosage: 50 MG, DAILY
     Route: 048
     Dates: start: 20170113
  2. SUTENT [Suspect]
     Active Substance: SUNITINIB MALATE
     Dosage: 50 MG, DAILY
     Route: 048
     Dates: start: 20170117
  3. SUTENT [Suspect]
     Active Substance: SUNITINIB MALATE
     Dosage: 50 MG, CYCLIC (28 DAYS WITH TWO WEEK BREAK)
     Route: 048
     Dates: start: 20170117
  4. SUTENT [Suspect]
     Active Substance: SUNITINIB MALATE
     Dosage: 50 MG, CYCLIC (DAILY X 4 WEEKS OFF X 2 WEEKS)
     Route: 048
     Dates: start: 20170117, end: 20170723
  5. SUTENT [Suspect]
     Active Substance: SUNITINIB MALATE
     Dosage: 50 MG, CYCLIC (DAILY X 3 WEEKS OFF X 2 WEEKS)
     Route: 048
     Dates: start: 20170724

REACTIONS (19)
  - Blood glucose decreased [Unknown]
  - Blister [Unknown]
  - Urine output decreased [Unknown]
  - Pollakiuria [Unknown]
  - Pain [Recovering/Resolving]
  - Dizziness [Unknown]
  - Diarrhoea [Unknown]
  - Fatigue [Not Recovered/Not Resolved]
  - Nausea [Unknown]
  - Circumstance or information capable of leading to medication error [Unknown]
  - Blood blister [Unknown]
  - Diabetes mellitus inadequate control [Unknown]
  - Confusional state [Unknown]
  - Constipation [Unknown]
  - Palmar-plantar erythrodysaesthesia syndrome [Unknown]
  - Incorrect dose administered [Unknown]
  - Faeces soft [Unknown]
  - Hypertension [Unknown]
  - Decreased appetite [Unknown]

NARRATIVE: CASE EVENT DATE: 20170320
